FAERS Safety Report 8552743-6 (Version None)
Quarter: 2012Q3

REPORT INFORMATION
  Report Type: 
  Country: None (occurrence: None)
  Receive Date: 20120731
  Receipt Date: 20120727
  Transmission Date: 20120928
  Serious: No
  Sender: FDA-Public Use
  Company Number: US-PFIZER INC-2012182953

PATIENT
  Sex: Female
  Weight: 58.503 kg

DRUGS (5)
  1. TRAVATAN [Suspect]
     Indication: VISUAL IMPAIRMENT
     Dosage: UNK,DAILY
  2. NORVASC [Suspect]
     Indication: HYPERTENSION
     Dosage: 2 DF, 1X/DAY
     Route: 048
     Dates: start: 20110101
  3. TIMOPTIC [Suspect]
     Indication: VISUAL IMPAIRMENT
     Dosage: UNK
     Dates: start: 20120101
  4. SYNTHROID [Concomitant]
     Indication: HYPOTHYROIDISM
     Dosage: UNK
  5. SERTRALINE [Concomitant]
     Indication: DEPRESSION
     Dosage: 1 DF, 1X/DAY
     Route: 048

REACTIONS (5)
  - VISUAL IMPAIRMENT [None]
  - EYE PAIN [None]
  - DIPLOPIA [None]
  - INTRAOCULAR PRESSURE INCREASED [None]
  - VISION BLURRED [None]
